FAERS Safety Report 12447616 (Version 1)
Quarter: 2016Q2

REPORT INFORMATION
  Report Type: Spontaneous
  Country: US (occurrence: None)
  Receive Date: 20160607
  Receipt Date: 20160607
  Transmission Date: 20160815
  Serious: Yes (Hospitalization)
  Sender: FDA-Public Use
  Company Number: None

PATIENT
  Age: 60 Year
  Sex: Male
  Weight: 72.2 kg

DRUGS (23)
  1. VITAMIN D [Concomitant]
     Active Substance: CHOLECALCIFEROL
  2. CLONIDINE. [Concomitant]
     Active Substance: CLONIDINE
  3. LATANOPROST. [Concomitant]
     Active Substance: LATANOPROST
  4. SOFOSBUVIR 400MG GILEAD [Suspect]
     Active Substance: SOFOSBUVIR
     Indication: HEPATITIS C
     Route: 048
     Dates: start: 20160223
  5. GENERLAC [Concomitant]
     Active Substance: LACTULOSE
  6. OXYCODONE [Concomitant]
     Active Substance: OXYCODONE
  7. SENNA LAXATIVE [Concomitant]
     Active Substance: SENNOSIDES
  8. CHOLECALCIFEROL [Concomitant]
     Active Substance: CHOLECALCIFEROL
  9. DACLATASVIR 60MG BMS [Suspect]
     Active Substance: DACLATASVIR
     Indication: HEPATITIS C
     Route: 048
     Dates: start: 20160223
  10. TAMSULOSIN [Concomitant]
     Active Substance: TAMSULOSIN
  11. LASIX [Concomitant]
     Active Substance: FUROSEMIDE
  12. DOCUSATE SODIUM. [Concomitant]
     Active Substance: DOCUSATE SODIUM
  13. NALOXONE [Concomitant]
     Active Substance: NALOXONE
  14. ASPIRIN. [Concomitant]
     Active Substance: ASPIRIN
  15. INSULIN [Concomitant]
     Active Substance: INSULIN NOS
  16. GABAPENTIN. [Concomitant]
     Active Substance: GABAPENTIN
  17. CAPSAICIN. [Concomitant]
     Active Substance: CAPSAICIN
  18. LOSARTAN. [Concomitant]
     Active Substance: LOSARTAN
  19. ZOLPIDEM [Concomitant]
     Active Substance: ZOLPIDEM\ZOLPIDEM TARTRATE
  20. PROPANOLOL [Concomitant]
     Active Substance: PROPRANOLOL HYDROCHLORIDE
  21. NOVOLOG [Concomitant]
     Active Substance: INSULIN ASPART
  22. ISOPHANE [Concomitant]
  23. COMBIVENT [Concomitant]
     Active Substance: ALBUTEROL SULFATE\IPRATROPIUM BROMIDE

REACTIONS (8)
  - Back pain [None]
  - Abdominal pain [None]
  - Pain [None]
  - Pain in extremity [None]
  - Hypoaesthesia [None]
  - Laboratory test abnormal [None]
  - Spinal column stenosis [None]
  - Paraesthesia [None]

NARRATIVE: CASE EVENT DATE: 20160305
